FAERS Safety Report 6883974-9 (Version None)
Quarter: 2010Q3

REPORT INFORMATION
  Report Type: 
  Country: None (occurrence: None)
  Receive Date: 20100729
  Receipt Date: 20100719
  Transmission Date: 20110219
  Serious: Yes (Hospitalization)
  Sender: FDA-Public Use
  Company Number: NL-ABBOTT-10P-114-0658836-00

PATIENT
  Sex: Male
  Weight: 75 kg

DRUGS (7)
  1. LUPRON DEPOT [Suspect]
     Indication: PROSTATE CANCER
     Route: 058
     Dates: start: 20070101
  2. CARBASALAATCALCIUM [Concomitant]
     Indication: ANTICOAGULANT THERAPY
     Dosage: SOLVABLE 2 TIMES DAILY; 1 UNIT
     Route: 048
     Dates: start: 20100101
  3. DICLOFENAC SODIUM [Concomitant]
     Indication: PAIN
     Dates: start: 20090501
  4. DIPYRIDAMOL [Concomitant]
     Indication: ANTICOAGULANT THERAPY
     Dosage: 2 TIMES DAILY; 1 UNIT
     Dates: start: 20100101
  5. LOPERAMIDE [Concomitant]
     Indication: DIARRHOEA
     Dates: start: 20100401
  6. METOPROLOL TARTRATE [Concomitant]
     Indication: BLOOD PRESSURE DECREASED
     Dosage: 1 TIME DAILY; 1 UNIT
     Route: 048
     Dates: start: 20090501
  7. OMEPRAZOLE [Concomitant]
     Indication: PROPHYLAXIS AGAINST GASTROINTESTINAL ULCER
     Dosage: 1 TIME DAILY; 1 UNIT
     Route: 048
     Dates: start: 20090501

REACTIONS (5)
  - CEREBROVASCULAR ACCIDENT [None]
  - DIARRHOEA [None]
  - FATIGUE [None]
  - HOT FLUSH [None]
  - TRANSIENT ISCHAEMIC ATTACK [None]
